FAERS Safety Report 4756316-2 (Version None)
Quarter: 2005Q3

REPORT INFORMATION
  Report Type: 
  Country: None (occurrence: None)
  Receive Date: 20050830
  Receipt Date: 20050526
  Transmission Date: 20060218
  Serious: No
  Sender: FDA-Public Use
  Company Number: US-GLAXOSMITHKLINE-A0560313A

PATIENT
  Age: 49 Year
  Sex: Female

DRUGS (2)
  1. WELLBUTRIN XL [Suspect]
     Indication: DEPRESSION
     Dosage: 150MG PER DAY
     Route: 048
     Dates: start: 20041001
  2. SYNTHROID [Concomitant]

REACTIONS (4)
  - BRUXISM [None]
  - DISTURBANCE IN ATTENTION [None]
  - DRY MOUTH [None]
  - HEART RATE INCREASED [None]
